FAERS Safety Report 18861347 (Version 2)
Quarter: 2021Q1

REPORT INFORMATION
  Report Type: Report from Study
  Country: CN (occurrence: CN)
  Receive Date: 20210208
  Receipt Date: 20210224
  Transmission Date: 20210420
  Serious: Yes (Hospitalization)
  Sender: FDA-Public Use
  Company Number: CN-ROCHE-2466537

PATIENT
  Age: 75 Year
  Sex: Male
  Weight: 55 kg

DRUGS (33)
  1. SODIUM HYALURONATE [Concomitant]
     Active Substance: HYALURONATE SODIUM
     Route: 030
     Dates: start: 20200605, end: 20200605
  2. DEXAMETHASONE PALMITATE [Concomitant]
     Active Substance: DEXAMETHASONE
     Route: 030
     Dates: start: 20200608, end: 20200608
  3. IMRECOXIB. [Concomitant]
     Active Substance: IMRECOXIB
     Route: 048
     Dates: start: 20200606, end: 20200606
  4. CONCOR [Concomitant]
     Active Substance: BISOPROLOL FUMARATE
     Route: 048
     Dates: start: 20191103, end: 20191114
  5. PROPACETAMOL HYDROCHLORIDE [Concomitant]
     Active Substance: PROPACETAMOL HYDROCHLORIDE
     Route: 042
     Dates: start: 20191102, end: 20191110
  6. REBAMIPIDE [Concomitant]
     Active Substance: REBAMIPIDE
     Route: 042
  7. TRAST [Concomitant]
     Dosage: TRAST (PIROXICAM PATCHES)
     Route: 065
     Dates: start: 20200606, end: 20200611
  8. TRAST [Concomitant]
     Route: 065
     Dates: start: 20200611, end: 20200619
  9. IMRECOXIB. [Concomitant]
     Active Substance: IMRECOXIB
     Route: 048
     Dates: start: 20200611, end: 20200616
  10. IMRECOXIB. [Concomitant]
     Active Substance: IMRECOXIB
     Route: 048
     Dates: start: 20191111
  11. NIFEDIPINE. [Concomitant]
     Active Substance: NIFEDIPINE
     Route: 048
     Dates: start: 20191103, end: 20191114
  12. LIDOCAINE HYDROCHLORIDE. [Concomitant]
     Active Substance: LIDOCAINE HYDROCHLORIDE
     Indication: ANALGESIC THERAPY
     Route: 042
     Dates: start: 20191111, end: 20191111
  13. DEXAMETHASONE PALMITATE [Concomitant]
     Active Substance: DEXAMETHASONE
     Route: 030
     Dates: start: 20200605, end: 20200605
  14. BUPRENORPHINE. [Concomitant]
     Active Substance: BUPRENORPHINE
     Indication: ARTHRALGIA
     Dosage: TRANSDERMA L PATCHES
     Route: 065
     Dates: start: 20200606, end: 20200611
  15. PANTOPRAZOLE SODIUM. [Concomitant]
     Active Substance: PANTOPRAZOLE SODIUM
     Route: 042
     Dates: start: 20191103, end: 20191104
  16. NALBUPHINE HYDROCHLORIDE. [Concomitant]
     Active Substance: NALBUPHINE HYDROCHLORIDE
     Indication: ANALGESIC THERAPY
     Route: 042
     Dates: start: 20191111, end: 20191111
  17. TIZANIDINE HYDROCHLORIDE. [Concomitant]
     Active Substance: TIZANIDINE HYDROCHLORIDE
     Route: 048
     Dates: start: 20200606, end: 20200611
  18. TIZANIDINE HYDROCHLORIDE. [Concomitant]
     Active Substance: TIZANIDINE HYDROCHLORIDE
     Route: 048
     Dates: start: 20191114
  19. ENOXAPARIN SODIUM. [Concomitant]
     Active Substance: ENOXAPARIN SODIUM
     Indication: ANTICOAGULANT THERAPY
     Dosage: 40,000 IU (INTERNATIONAL UNIT)
     Route: 058
     Dates: start: 20191104, end: 20191109
  20. CEFUROXIME SODIUM. [Concomitant]
     Active Substance: CEFUROXIME SODIUM
     Route: 042
     Dates: start: 20191111, end: 20191111
  21. HEMOCOAGULASE ATROX [Concomitant]
     Dosage: 1 OTHER
     Route: 042
     Dates: start: 20191111, end: 20191111
  22. MONTMORILLONITE [Concomitant]
     Active Substance: MONTMORILLONITE
     Indication: DIARRHOEA
     Route: 048
     Dates: start: 20190801, end: 20190802
  23. CEFUROXIME SODIUM. [Concomitant]
     Active Substance: CEFUROXIME SODIUM
     Route: 058
     Dates: start: 20191111
  24. PIROXICAM. [Concomitant]
     Active Substance: PIROXICAM
     Indication: ARTHRALGIA
     Dosage: PIROXICAM PATCHES
     Route: 062
     Dates: start: 20200514, end: 20200601
  25. ASPIRIN. [Concomitant]
     Active Substance: ASPIRIN
     Route: 048
     Dates: start: 20191103, end: 20191105
  26. FLURBIPROFEN AXETIL [Concomitant]
     Active Substance: FLURBIPROFEN AXETIL
     Indication: ANALGESIC THERAPY
     Route: 042
     Dates: start: 20191111
  27. ATEZOLIZUMAB. [Suspect]
     Active Substance: ATEZOLIZUMAB
     Indication: NON-SMALL CELL LUNG CANCER METASTATIC
     Dosage: DATE AND DOSE (1200 MG) OF MOST RECENT ATEZOLIZUMAB ADMINISTERED PRIOR TO AE/SAE ONSET: 30/OCT/2019
     Route: 042
     Dates: start: 20190626
  28. TIZANIDINE HYDROCHLORIDE. [Concomitant]
     Active Substance: TIZANIDINE HYDROCHLORIDE
     Route: 048
     Dates: start: 20200611, end: 20200616
  29. CALCIUM CARBONATE;VITAMIN D3 [Concomitant]
     Route: 048
     Dates: start: 20191103
  30. PROPACETAMOL HYDROCHLORIDE [Concomitant]
     Active Substance: PROPACETAMOL HYDROCHLORIDE
     Route: 042
     Dates: start: 20191112, end: 20191113
  31. SODIUM HYALURONATE [Concomitant]
     Active Substance: HYALURONATE SODIUM
     Route: 030
     Dates: start: 20200610, end: 20200610
  32. BUPRENORPHINE. [Concomitant]
     Active Substance: BUPRENORPHINE
     Route: 062
     Dates: start: 20200514, end: 20200528
  33. MANNITOL. [Concomitant]
     Active Substance: MANNITOL
     Indication: DEHYDRATION
     Route: 042
     Dates: start: 20191112, end: 20191112

REACTIONS (1)
  - Intervertebral disc protrusion [Recovered/Resolved]

NARRATIVE: CASE EVENT DATE: 20191102
